FAERS Safety Report 16039737 (Version 1)
Quarter: 2019Q1

REPORT INFORMATION
  Report Type: Spontaneous
  Country: GB (occurrence: GB)
  Receive Date: 20190306
  Receipt Date: 20190306
  Transmission Date: 20190418
  Serious: Yes (Hospitalization, Disabling)
  Sender: FDA-Public Use
  Company Number: GB-ACCORD-110255

PATIENT
  Age: 60 Year
  Sex: Male

DRUGS (12)
  1. SITAGLIPTIN [Concomitant]
     Active Substance: SITAGLIPTIN
  2. DIGOXIN. [Concomitant]
     Active Substance: DIGOXIN
  3. XARELTO [Concomitant]
     Active Substance: RIVAROXABAN
  4. ATORVASTATIN [Concomitant]
     Active Substance: ATORVASTATIN
  5. ARIPIPRAZOLE. [Suspect]
     Active Substance: ARIPIPRAZOLE
     Indication: ACUTE PSYCHOSIS
     Route: 048
     Dates: start: 20180822
  6. METFORMIN [Concomitant]
     Active Substance: METFORMIN HYDROCHLORIDE
  7. OMEPRAZOLE. [Concomitant]
     Active Substance: OMEPRAZOLE
  8. BISOPROLOL [Concomitant]
     Active Substance: BISOPROLOL
  9. LORAZEPAM. [Concomitant]
     Active Substance: LORAZEPAM
  10. ZOPICLONE [Concomitant]
     Active Substance: ZOPICLONE
  11. FUROSEMIDE. [Concomitant]
     Active Substance: FUROSEMIDE
  12. RAMIPRIL. [Concomitant]
     Active Substance: RAMIPRIL

REACTIONS (8)
  - Hypokinesia [Unknown]
  - Communication disorder [Unknown]
  - Hyperhidrosis [Unknown]
  - Atrial fibrillation [Unknown]
  - Peripheral coldness [Unknown]
  - Sepsis [Unknown]
  - Muscle rigidity [Unknown]
  - Neuroleptic malignant syndrome [Recovering/Resolving]

NARRATIVE: CASE EVENT DATE: 20180823
